FAERS Safety Report 7958967-0 (Version None)
Quarter: 2011Q4

REPORT INFORMATION
  Report Type: 
  Country: None (occurrence: None)
  Receive Date: 20111130
  Receipt Date: 20110927
  Transmission Date: 20120403
  Serious: Yes (Life-Threatening, Hospitalization, Other)
  Sender: FDA-Public Use
  Company Number: CRC-11-241

PATIENT
  Age: 50 Year
  Sex: Female
  Weight: 137 kg

DRUGS (2)
  1. AMLODIPINE [Suspect]
     Indication: OVERDOSE
     Dosage: 77 X 10 MG ONCE; ORAL
     Route: 048
  2. LOSARTAN POTASSIUM [Suspect]
     Indication: OVERDOSE
     Dosage: *104 X 160 MG ONCE; ORAL
     Route: 048

REACTIONS (9)
  - TACHYCARDIA [None]
  - OVERDOSE [None]
  - ANURIA [None]
  - HYPOXIA [None]
  - RENAL FAILURE [None]
  - HYPERKALAEMIA [None]
  - HYPOTENSION [None]
  - PULMONARY OEDEMA [None]
  - METABOLIC ACIDOSIS [None]
